FAERS Safety Report 8133958-8 (Version None)
Quarter: 2012Q1

REPORT INFORMATION
  Report Type: 
  Country: None (occurrence: None)
  Receive Date: 20120213
  Receipt Date: 20120202
  Transmission Date: 20120608
  Serious: Yes (Hospitalization, Other)
  Sender: FDA-Public Use
  Company Number: CA-ASTRAZENECA-2011SE16953

PATIENT
  Age: 60 Year
  Sex: Female

DRUGS (3)
  1. ARIMIDEX [Suspect]
     Indication: BREAST CANCER STAGE I
     Route: 048
     Dates: start: 20090823, end: 20110301
  2. CALCIUM CARBONATE [Concomitant]
     Route: 048
  3. CENTRUM PLUS [Concomitant]
     Route: 048

REACTIONS (14)
  - PERIARTHRITIS [None]
  - UTERINE CANCER [None]
  - BILIARY TRACT DISORDER [None]
  - HEAD DISCOMFORT [None]
  - VOMITING [None]
  - MUSCULOSKELETAL STIFFNESS [None]
  - DIZZINESS [None]
  - CATARACT [None]
  - BONE PAIN [None]
  - HYPERTROPHIC CARDIOMYOPATHY [None]
  - FLANK PAIN [None]
  - MYALGIA [None]
  - ARTHRALGIA [None]
  - ENDOMETRIAL CANCER STAGE II [None]
